FAERS Safety Report 16086704 (Version 1)
Quarter: 2019Q1

REPORT INFORMATION
  Report Type: Report from Study
  Country: JP (occurrence: JP)
  Receive Date: 20190318
  Receipt Date: 20190318
  Transmission Date: 20190418
  Serious: Yes (Death)
  Sender: FDA-Public Use
  Company Number: PHHY2014JP175677

PATIENT
  Sex: Male
  Weight: 67 kg

DRUGS (6)
  1. VOTRIENT [Suspect]
     Active Substance: PAZOPANIB HYDROCHLORIDE
     Indication: SYNOVIAL SARCOMA
     Dosage: 800 MG, QD
     Route: 048
     Dates: start: 20130126, end: 20130128
  2. VOTRIENT [Suspect]
     Active Substance: PAZOPANIB HYDROCHLORIDE
     Dosage: 600 MG, QD
     Route: 048
     Dates: start: 20130219, end: 20130408
  3. VOTRIENT [Suspect]
     Active Substance: PAZOPANIB HYDROCHLORIDE
     Dosage: 800 MG, QD
     Route: 048
     Dates: start: 20130409, end: 20130701
  4. ESOMEPRAZOLE MAGNESIUM HYDRATE [Concomitant]
     Active Substance: ESOMEPRAZOLE MAGNESIUM
     Indication: OESOPHAGITIS
     Route: 048
     Dates: end: 20130924
  5. CALBLOCK [Concomitant]
     Active Substance: AZELNIDIPINE
     Indication: HYPERTENSION
     Route: 048
     Dates: start: 20130203, end: 20130924
  6. PERDIPINE [Concomitant]
     Active Substance: NICARDIPINE HYDROCHLORIDE
     Indication: HYPERTENSION
     Route: 048
     Dates: end: 20130201

REACTIONS (6)
  - Oesophagitis [Recovering/Resolving]
  - Hypertension [Recovering/Resolving]
  - Hypothyroidism [Not Recovered/Not Resolved]
  - Malignant neoplasm progression [Fatal]
  - Proteinuria [Unknown]
  - Synovial sarcoma [Fatal]

NARRATIVE: CASE EVENT DATE: 20130128
